FAERS Safety Report 11379187 (Version 1)
Quarter: 2015Q3

REPORT INFORMATION
  Report Type: Spontaneous
  Country: US (occurrence: None)
  Receive Date: 20150813
  Receipt Date: 20150813
  Transmission Date: 20151125
  Serious: Yes (Disabling)
  Sender: FDA-Public Use
  Company Number: None

PATIENT
  Age: 49 Year
  Sex: Female
  Weight: 61.24 kg

DRUGS (12)
  1. INUNIOTIN [Concomitant]
  2. NIAENCIN [Concomitant]
  3. BACLOFEN. [Concomitant]
     Active Substance: BACLOFEN
  4. PLEGRIDY [Suspect]
     Active Substance: PEGINTERFERON BETA-1A
     Indication: RELAPSING-REMITTING MULTIPLE SCLEROSIS
     Dosage: 94MCG/0.5ML?94MCG/0.5ML 1 SHOT?EVERY TWO WEEKS?SUBCUTANEOUS SHOT
     Route: 058
     Dates: start: 20150622, end: 20150706
  5. PLEGRIDY [Suspect]
     Active Substance: PEGINTERFERON BETA-1A
     Indication: MULTIPLE SCLEROSIS
     Dosage: 94MCG/0.5ML?94MCG/0.5ML 1 SHOT?EVERY TWO WEEKS?SUBCUTANEOUS SHOT
     Route: 058
     Dates: start: 20150622, end: 20150706
  6. VITAMIN B12 [Suspect]
     Active Substance: CYANOCOBALAMIN
  7. D3 [Concomitant]
     Active Substance: 25-HYDROXYCHOLECALCIFEROL, 5-TRANS-
  8. MULTI [Concomitant]
  9. AOLALIPIC ACID [Concomitant]
  10. NAPROXEN. [Concomitant]
     Active Substance: NAPROXEN
  11. VITAMIN C [Concomitant]
     Active Substance: ASCORBIC ACID
  12. INTERSTEM FOR BLADDER [Concomitant]

REACTIONS (7)
  - Spinal pain [None]
  - Blood disorder [None]
  - Headache [None]
  - Feeling abnormal [None]
  - Pain in extremity [None]
  - Depression [None]
  - Fall [None]

NARRATIVE: CASE EVENT DATE: 20150706
